FAERS Safety Report 5008693-5 (Version None)
Quarter: 2006Q2

REPORT INFORMATION
  Report Type: 
  Country: None (occurrence: None)
  Receive Date: 20060518
  Receipt Date: 20060505
  Transmission Date: 20061013
  Serious: Yes (Hospitalization)
  Sender: FDA-Public Use
  Company Number: 2006056772

PATIENT
  Age: 77 Year
  Sex: Female

DRUGS (6)
  1. BEXTRA [Suspect]
     Indication: PAIN
     Dosage: (10 MG), ORAL
     Route: 048
  2. METFORMIN [Concomitant]
  3. LISINOPRIL W/HYDROCHLOROTHIAZIDE (HYDROCHLOROTHIAZIDE, LISINOPRIL) [Concomitant]
  4. LEVOXYL [Concomitant]
  5. QUININE SULFATE [Concomitant]
  6. DIPHENHYDRAMINE HCL [Concomitant]

REACTIONS (1)
  - DERMATITIS ALLERGIC [None]
